FAERS Safety Report 4818439-9 (Version None)
Quarter: 2005Q4

REPORT INFORMATION
  Report Type: 
  Country: None (occurrence: None)
  Receive Date: 20051102
  Receipt Date: 20051025
  Transmission Date: 20060501
  Serious: Yes (Other)
  Sender: FDA-Public Use
  Company Number: PHBS2005DK15984

PATIENT

DRUGS (1)
  1. RITALIN [Suspect]
     Route: 065

REACTIONS (2)
  - INFECTIOUS MONONUCLEOSIS [None]
  - LIVER FUNCTION TEST ABNORMAL [None]
